FAERS Safety Report 8127785-5 (Version None)
Quarter: 2011Q4

REPORT INFORMATION
  Report Type: 
  Country: None (occurrence: None)
  Receive Date: 20111227
  Receipt Date: 20110916
  Transmission Date: 20120403
  Serious: No
  Sender: FDA-Public Use
  Company Number: PHHY2011US65689

PATIENT
  Age: 52 Year
  Sex: Female

DRUGS (13)
  1. NITROFURANTOIN [Concomitant]
  2. METAMUCIL (ISPAGHULA, PLANTAGO OVATA) [Concomitant]
  3. MULTIVITAMIN [Concomitant]
  4. VITAMIN D 2 [Concomitant]
  5. MYSOLINE [Concomitant]
  6. CALCIUM WITH VITAMIN D (CALCIUM PHOSPHATE, CALCIUM SODIUM LACTATE, ERG [Concomitant]
  7. ALEVE [Concomitant]
  8. OXYBUTYNIN [Concomitant]
  9. COLACE (DOCUSATE SODIUM) [Concomitant]
  10. FISH OIL (FISH OIL) [Concomitant]
  11. ALENDRONATE SODIUM [Concomitant]
  12. GILENYA [Suspect]
     Indication: MULTIPLE SCLEROSIS
     Dosage: 0.5 MG, QD, ORAL
     Route: 048
     Dates: start: 20110506
  13. LOVASTATIN [Concomitant]

REACTIONS (3)
  - HEADACHE [None]
  - ATAXIA [None]
  - CHROMATURIA [None]
